FAERS Safety Report 7752918-X (Version None)
Quarter: 2011Q3

REPORT INFORMATION
  Report Type: 
  Country: None (occurrence: None)
  Receive Date: 20110913
  Receipt Date: 20110831
  Transmission Date: 20111222
  Serious: Yes (Life-Threatening, Hospitalization)
  Sender: FDA-Public Use
  Company Number: TCI2011A03800

PATIENT
  Age: 62 Year
  Sex: Male

DRUGS (2)
  1. NATEGLINIDE [Suspect]
     Indication: DIABETES MELLITUS
     Dosage: 270 MG (90 MG,3 IN 1 D), PER ORAL
     Route: 048
     Dates: start: 20090820
  2. ACTOS [Suspect]
     Indication: DIABETES MELLITUS
     Dosage: 15 MG (15 MG, 1-2), PER ORAL
     Route: 048
     Dates: start: 20090807

REACTIONS (2)
  - BENIGN PROSTATIC HYPERPLASIA [None]
  - BLADDER TRANSITIONAL CELL CARCINOMA [None]
